FAERS Safety Report 5250772-1 (Version None)
Quarter: 2007Q1

REPORT INFORMATION
  Report Type: 
  Country: None (occurrence: None)
  Receive Date: 20070228
  Receipt Date: 20070214
  Transmission Date: 20070707
  Serious: Yes (Hospitalization, Other)
  Sender: FDA-Public Use
  Company Number: US-ELI_LILLY_AND_COMPANY-US200702002758

PATIENT
  Age: 71 Year
  Sex: Female

DRUGS (7)
  1. CYMBALTA [Suspect]
     Indication: ANXIETY
     Dosage: 60 MG, UNKNOWN
     Route: 050
  2. ACTOS /USA/ [Concomitant]
  3. TRICOR [Concomitant]
  4. LIPITOR [Concomitant]
  5. CARBIDOPA AND LEVODOPA [Concomitant]
  6. DARVOCET [Concomitant]
  7. ATIVAN [Concomitant]

REACTIONS (2)
  - AORTIC ANEURYSM [None]
  - RESPIRATORY DISTRESS [None]
